FAERS Safety Report 22367803 (Version 2)
Quarter: 2023Q2

REPORT INFORMATION
  Report Type: Spontaneous
  Country: CZ (occurrence: CZ)
  Receive Date: 20230525
  Receipt Date: 20230604
  Transmission Date: 20230722
  Serious: Yes (Other)
  Sender: FDA-Public Use
  Company Number: CZ-TEVA-2023-CZ-2889822

PATIENT
  Age: 14 Year
  Sex: Male

DRUGS (1)
  1. IMATINIB [Suspect]
     Active Substance: IMATINIB
     Indication: Adult T-cell lymphoma/leukaemia
     Route: 065

REACTIONS (6)
  - Petechiae [Recovered/Resolved]
  - Abdominal pain [Recovered/Resolved]
  - Myalgia [Recovered/Resolved]
  - Toxicity to various agents [Recovering/Resolving]
  - Volume blood increased [Unknown]
  - Drug level above therapeutic [Unknown]
